FAERS Safety Report 21091301 (Version 1)
Quarter: 2022Q3

REPORT INFORMATION
  Report Type: Spontaneous
  Country: CN (occurrence: CN)
  Receive Date: 20220716
  Receipt Date: 20220716
  Transmission Date: 20221027
  Serious: Yes (Hospitalization, Other)
  Sender: FDA-Public Use
  Company Number: CN-MACLEODS PHARMACEUTICALS US LTD-MAC2022036312

PATIENT

DRUGS (6)
  1. LIDOCAINE [Interacting]
     Active Substance: LIDOCAINE
     Indication: Epidural anaesthesia
     Dosage: 3 MILLILITER, SINGLE (2% LIDOCAINE AFTER 3MIN, TOTAL), 12ML FRESH 0.83% ALKALIZED LIDOCAINE (LALK) (
     Route: 008
  2. LIDOCAINE [Interacting]
     Active Substance: LIDOCAINE
     Dosage: 15 MILLILITER, SINGLE 12ML FRESH 0.83% ALKALIZED LIDOCAINE (LALK) (15ML 2% LIDOCAINE PLUS 3ML 5% SOD
     Route: 008
  3. ROPIVACAINE [Interacting]
     Active Substance: ROPIVACAINE
     Indication: Epidural anaesthesia
     Dosage: 6 MILLILITER, Q.H. (0.09 % ROPIVACAINE)
     Route: 008
  4. ROPIVACAINE [Interacting]
     Active Substance: ROPIVACAINE
     Indication: Analgesic therapy
     Dosage: 7.5 MILLILITER, SINGLE (0.75% ROPIVACAINE )
     Route: 008
  5. SODIUM BICARBONATE [Interacting]
     Active Substance: SODIUM BICARBONATE
     Indication: Epidural anaesthesia
     Dosage: 3 MILLILITER, SINGLE (12ML FRESH 0.83% ALKALIZED LIDOCAINE (LALK) (15ML 2% LIDOCAINE PLUS 3ML 5% SOD
     Route: 008
  6. SUFENTANIL [Concomitant]
     Active Substance: SUFENTANIL
     Indication: Analgesic therapy
     Dosage: 6 MILLILITER, Q.H. (5 MCG/ML)
     Route: 008

REACTIONS (6)
  - Paraesthesia [Recovering/Resolving]
  - Muscular weakness [Recovered/Resolved]
  - Fall [Recovered/Resolved]
  - Hypoaesthesia [Recovering/Resolving]
  - Drug interaction [Recovering/Resolving]
  - Maternal exposure during pregnancy [Unknown]
